FAERS Safety Report 6524246-1 (Version None)
Quarter: 2009Q4

REPORT INFORMATION
  Report Type: 
  Country: None (occurrence: None)
  Receive Date: 20091230
  Receipt Date: 20091230
  Transmission Date: 20100525
  Serious: Yes (Hospitalization)
  Sender: FDA-Public Use
  Company Number: None

PATIENT
  Age: 58 Year
  Sex: Male
  Weight: 60.1 kg

DRUGS (2)
  1. BUPROPION HCL [Suspect]
     Indication: ANXIETY
     Dosage: 150 MG EVERY DAY PO
     Route: 048
     Dates: start: 20080414, end: 20080415
  2. BUPROPION HCL [Suspect]
     Indication: SMOKING CESSATION THERAPY
     Dosage: 150 MG EVERY DAY PO
     Route: 048
     Dates: start: 20080414, end: 20080415

REACTIONS (1)
  - GRAND MAL CONVULSION [None]
